FAERS Safety Report 10948348 (Version 1)
Quarter: 2015Q1

REPORT INFORMATION
  Report Type: Spontaneous
  Country: US (occurrence: None)
  Receive Date: 20150320
  Receipt Date: 20150320
  Transmission Date: 20150721
  Serious: Yes (Other)
  Sender: FDA-Public Use
  Company Number: CIO14066038

PATIENT
  Age: 44 Year
  Sex: Male
  Weight: 83.9 kg

DRUGS (10)
  1. CREST COMPLETE MULTI-BENEFIT WHITENING PLUS SCOPE [Suspect]
     Active Substance: SODIUM FLUORIDE
     Indication: PERIODONTAL DISEASE
     Dosage: INTRAORAL
  2. CREST COMPLETE MULTI-BENEFIT WHITENING PLUS SCOPE [Suspect]
     Active Substance: SODIUM FLUORIDE
     Indication: DENTAL CARE
     Dosage: INTRAORAL
  3. CREST [Suspect]
     Active Substance: SODIUM FLUORIDE
     Indication: DENTAL CARE
     Dosage: INTRAORAL
  4. CREST CAVITY PROTECTION [Suspect]
     Active Substance: SODIUM FLUORIDE
     Indication: DENTAL CARE
     Dosage: INTRAORAL
  5. CREST [Suspect]
     Active Substance: SODIUM FLUORIDE
     Indication: PERIODONTAL DISEASE
     Dosage: INTRAORAL
  6. CREST PRO-HEALTH RINSE [Suspect]
     Active Substance: CETYLPYRIDINIUM CHLORIDE
     Indication: PERIODONTAL DISEASE
     Dosage: INTRAORAL
  7. CREST PRO-HEALTH RINSE [Suspect]
     Active Substance: CETYLPYRIDINIUM CHLORIDE
     Indication: DENTAL CARE
     Dosage: INTRAORAL
  8. CREST CAVITY PROTECTION [Suspect]
     Active Substance: SODIUM FLUORIDE
     Indication: PERIODONTAL DISEASE
     Dosage: INTRAORAL
  9. CREST [Suspect]
     Active Substance: SODIUM FLUORIDE
     Indication: DENTAL CARE
     Dosage: 1 APPLIC, 2/DAY, INTRAORAL
     Dates: end: 20140918
  10. CREST [Suspect]
     Active Substance: SODIUM FLUORIDE
     Indication: PERIODONTAL DISEASE
     Dosage: 1 APPLIC, 2/DAY, INTRAORAL
     Dates: end: 20140918

REACTIONS (4)
  - Gingival disorder [None]
  - Gingival swelling [None]
  - Toothache [None]
  - Gingival pain [None]

NARRATIVE: CASE EVENT DATE: 201405
